FAERS Safety Report 15183431 (Version 1)
Quarter: 2018Q3

REPORT INFORMATION
  Report Type: Spontaneous
  Country: DE (occurrence: DE)
  Receive Date: 20180723
  Receipt Date: 20180723
  Transmission Date: 20181010
  Serious: Yes (Hospitalization)
  Sender: FDA-Public Use
  Company Number: PHHY2018DE048692

PATIENT
  Age: 64 Year
  Sex: Female

DRUGS (2)
  1. FOLSAEURE [Concomitant]
     Active Substance: FOLIC ACID
     Indication: PRODUCT USED FOR UNKNOWN INDICATION
     Dosage: UNK MG, QD (24 H SP?TER)
     Route: 065
  2. METHOTREXATE. [Suspect]
     Active Substance: METHOTREXATE
     Indication: PRODUCT USED FOR UNKNOWN INDICATION
     Dosage: UNK MG, QW (NK MG, 1X/WOCHE)
     Route: 065

REACTIONS (7)
  - Anal incontinence [Unknown]
  - Abdominal pain [Unknown]
  - Hypersensitivity [Unknown]
  - Headache [Unknown]
  - Paraesthesia [Unknown]
  - Urinary incontinence [Unknown]
  - Vomiting [Unknown]
